FAERS Safety Report 18428059 (Version 1)
Quarter: 2020Q4

REPORT INFORMATION
  Report Type: Report from Study
  Country: CO (occurrence: CO)
  Receive Date: 20201026
  Receipt Date: 20201026
  Transmission Date: 20210114
  Serious: Yes (Hospitalization, Other)
  Sender: FDA-Public Use
  Company Number: CO-JNJFOC-20201017720

PATIENT
  Age: 62 Year
  Sex: Female
  Weight: 78 kg

DRUGS (5)
  1. LEVOTHYROXINE. [Concomitant]
     Active Substance: LEVOTHYROXINE
  2. STELARA [Suspect]
     Active Substance: USTEKINUMAB
     Indication: PSORIASIS
     Dosage: LAST APPLICATION 23-JUN-2020
     Route: 058
     Dates: start: 20160926
  3. ENALAPRIL [Concomitant]
     Active Substance: ENALAPRIL
  4. INSULIN [Concomitant]
     Active Substance: INSULIN NOS
  5. ATORVASTATIN [Concomitant]
     Active Substance: ATORVASTATIN

REACTIONS (3)
  - Blood glucose increased [Recovering/Resolving]
  - Osteoporosis [Unknown]
  - COVID-19 [Unknown]

NARRATIVE: CASE EVENT DATE: 2018
